FAERS Safety Report 20831207 (Version 1)
Quarter: 2022Q2

REPORT INFORMATION
  Report Type: Spontaneous
  Country: US (occurrence: US)
  Receive Date: 20220515
  Receipt Date: 20220515
  Transmission Date: 20220721
  Serious: No
  Sender: FDA-Public Use
  Company Number: US-JNJFOC-20220516031

PATIENT
  Age: 70 Year
  Sex: Female
  Weight: 86.260 kg

DRUGS (14)
  1. SIMPONI ARIA [Suspect]
     Active Substance: GOLIMUMAB
     Indication: Ankylosing spondylitis
     Route: 042
     Dates: start: 202201
  2. GABAPENTIN [Concomitant]
     Active Substance: GABAPENTIN
  3. LEVOTHYROXINE [Concomitant]
     Active Substance: LEVOTHYROXINE
  4. METHOTREXATE [Concomitant]
     Active Substance: METHOTREXATE
  5. METOPROLOL [Concomitant]
     Active Substance: METOPROLOL
  6. BOTOX [Concomitant]
     Active Substance: ONABOTULINUMTOXINA
     Indication: Migraine
  7. ALPRAZOLAM [Concomitant]
     Active Substance: ALPRAZOLAM
  8. BUPROPION [Concomitant]
     Active Substance: BUPROPION
  9. CLONAZEPAM [Concomitant]
     Active Substance: CLONAZEPAM
  10. FLUOXETINE [Concomitant]
     Active Substance: FLUOXETINE HYDROCHLORIDE
  11. FELODIPINE [Concomitant]
     Active Substance: FELODIPINE
  12. PANTOPRAZOLE [Concomitant]
     Active Substance: PANTOPRAZOLE
  13. QUETIAPINE [Concomitant]
     Active Substance: QUETIAPINE
  14. TRAMADOL HYDROCHLORIDE [Concomitant]
     Active Substance: TRAMADOL HYDROCHLORIDE

REACTIONS (1)
  - COVID-19 [Not Recovered/Not Resolved]

NARRATIVE: CASE EVENT DATE: 20220423
